FAERS Safety Report 9991135 (Version 1)
Quarter: 2014Q1

REPORT INFORMATION
  Report Type: Report from Study
  Country: US (occurrence: US)
  Receive Date: 20140310
  Receipt Date: 20140310
  Transmission Date: 20141002
  Serious: No
  Sender: FDA-Public Use
  Company Number: US-ABBVIE-13P-163-1131662-00

PATIENT
  Sex: Female

DRUGS (4)
  1. HUMIRA [Suspect]
     Indication: PSORIASIS
     Dates: start: 20130122
  2. LOSARTAN [Concomitant]
     Indication: HYPERTENSION
     Dosage: 25MG DAILY
  3. PEPCID [Concomitant]
     Indication: DYSPEPSIA
  4. LORAZEPAM [Concomitant]
     Indication: ANXIETY

REACTIONS (2)
  - Arthritis infective [Unknown]
  - Drug effect decreased [Unknown]
